FAERS Safety Report 5656117-7 (Version None)
Quarter: 2008Q1

REPORT INFORMATION
  Report Type: 
  Country: None (occurrence: None)
  Receive Date: 20080305
  Receipt Date: 20080228
  Transmission Date: 20080703
  Serious: Yes (Disabling)
  Sender: FDA-Public Use
  Company Number: APP200800135

PATIENT
  Age: 28 Year
  Sex: Female

DRUGS (4)
  1. SENSORCAINE [Suspect]
     Indication: MUSCULOSKELETAL PAIN
     Dosage: (CONTINUOUS VIA PAIN PUMP)
     Dates: start: 20030601
  2. NAROPIN [Suspect]
     Indication: MUSCULOSKELETAL PAIN
     Dosage: (CONTINUOUS VIA PAIN PUMP)
     Dates: start: 20030601
  3. ORATEC ANGLE TIP TAC-S PROBE [Suspect]
     Indication: SHOULDER OPERATION
     Dates: start: 20030601
  4. DJ ORTHO PAIN BUSTER PAIN PUMP [Suspect]
     Indication: MUSCULOSKELETAL PAIN
     Dates: start: 20030601

REACTIONS (2)
  - CHONDROLYSIS [None]
  - MUSCULOSKELETAL PAIN [None]
